FAERS Safety Report 5556182-1 (Version None)
Quarter: 2007Q4

REPORT INFORMATION
  Report Type: 
  Country: None (occurrence: None)
  Receive Date: 20071130
  Receipt Date: 20070622
  Transmission Date: 20080405
  Serious: No
  Sender: FDA-Public Use
  Company Number: 2006PV021542

PATIENT
  Age: 66 Year
  Sex: Female

DRUGS (14)
  1. EXENATIDE (EXENATIDE) PEN, DISPOSABLE [Suspect]
     Indication: TYPE 2 DIABETES MELLITUS
     Dosage: SEE IMAGE
     Route: 058
     Dates: start: 20050101, end: 20070301
  2. EXENATIDE (EXENATIDE) PEN, DISPOSABLE [Suspect]
     Indication: TYPE 2 DIABETES MELLITUS
     Dosage: SEE IMAGE
     Route: 058
     Dates: start: 20060916
  3. EXENATIDE (EXENATIDE) PEN, DISPOSABLE [Suspect]
     Indication: TYPE 2 DIABETES MELLITUS
     Dosage: SEE IMAGE
     Route: 058
     Dates: start: 20070301
  4. EXENATIDE 5MCG PEN, DISPOSABLE DEVICE (EXENATIDE PEN (5 MCG)) PEN, DIS [Concomitant]
  5. EXENATIDE 10MCG PEN, DISPOSABLE DEVICE (EXENATIDE PEN (10MCG)) PEN, DI [Concomitant]
  6. EXENATIDE UNK STRENGTH PEN, DISPOSABLE DEVICE (EXENAIDE PEN (UNKNOWN S [Concomitant]
  7. PRANDIN (DEFLAZACORT) [Concomitant]
  8. METFORMIN HCL [Concomitant]
  9. ALBUTEROL [Concomitant]
  10. INTAL [Concomitant]
  11. AZMACORT [Concomitant]
  12. EXENATIDE (EXENATIDE) PEN, DISPOSABLE [Suspect]
  13. EXENATIDE (EXENATIDE) PEN, DISPOSABLE [Suspect]
  14. EXENATIDE (EXENATIDE) PEN, DISPOSABLE [Concomitant]

REACTIONS (9)
  - ABDOMINAL DISTENSION [None]
  - ERUCTATION [None]
  - FATIGUE [None]
  - INSOMNIA [None]
  - NAUSEA [None]
  - PAIN [None]
  - POLLAKIURIA [None]
  - SOMNOLENCE [None]
  - WEIGHT DECREASED [None]
